FAERS Safety Report 18363580 (Version 6)
Quarter: 2022Q4

REPORT INFORMATION
  Report Type: Spontaneous
  Country: JP (occurrence: JP)
  Receive Date: 20201009
  Receipt Date: 20221021
  Transmission Date: 20230112
  Serious: Yes (Other)
  Sender: FDA-Public Use
  Company Number: JP-BRISTOL-MYERS SQUIBB COMPANY-BMS-2020-082983

PATIENT
  Age: 67 Year
  Sex: Male

DRUGS (7)
  1. YERVOY [Suspect]
     Active Substance: IPILIMUMAB
     Indication: Malignant melanoma
     Dosage: UNK
     Route: 041
     Dates: start: 20200916, end: 20201007
  2. YERVOY [Suspect]
     Active Substance: IPILIMUMAB
     Dosage: UNKNOWN
     Route: 041
     Dates: start: 20201007, end: 20201022
  3. OPDIVO [Suspect]
     Active Substance: NIVOLUMAB
     Indication: Malignant melanoma
     Dosage: UNK
     Route: 041
     Dates: start: 20200916, end: 20221007
  4. OPDIVO [Suspect]
     Active Substance: NIVOLUMAB
     Dosage: UNKNOWN
     Route: 041
     Dates: start: 20201007, end: 20201109
  5. OPDIVO [Suspect]
     Active Substance: NIVOLUMAB
     Dosage: UNKNOWN
     Route: 041
     Dates: start: 20201109, end: 20201123
  6. OPDIVO [Suspect]
     Active Substance: NIVOLUMAB
     Dosage: UNKNOWN
     Route: 041
     Dates: start: 20201123, end: 20210106
  7. UNSPECIFIED INGREDIENT [Concomitant]
     Active Substance: UNSPECIFIED INGREDIENT
     Indication: Malignant melanoma
     Route: 065

REACTIONS (4)
  - Liver disorder [Recovered/Resolved]
  - Angle closure glaucoma [Recovering/Resolving]
  - Metastases to pancreas [Unknown]
  - Therapeutic product effect incomplete [Unknown]

NARRATIVE: CASE EVENT DATE: 20201001
